FAERS Safety Report 6463976-7 (Version None)
Quarter: 2009Q4

REPORT INFORMATION
  Report Type: 
  Country: None (occurrence: None)
  Receive Date: 20091123
  Receipt Date: 20091112
  Transmission Date: 20100525
  Serious: Yes (Hospitalization)
  Sender: FDA-Public Use
  Company Number: 001459

PATIENT
  Age: 74 Year
  Sex: Male

DRUGS (2)
  1. BICALUTAMIDE [Suspect]
     Indication: PROSTATE CANCER
     Dosage: (80 MG QD ORAL)
     Route: 048
     Dates: start: 20011001, end: 20020715
  2. LEUPRORELIN ACETATE [Concomitant]

REACTIONS (4)
  - BLADDER CANCER RECURRENT [None]
  - DRUG WITHDRAWAL SYNDROME [None]
  - METASTASES TO LYMPH NODES [None]
  - PROSTATIC SPECIFIC ANTIGEN INCREASED [None]
